FAERS Safety Report 11893752 (Version 9)
Quarter: 2018Q2

REPORT INFORMATION
  Report Type: Spontaneous
  Country: BR (occurrence: BR)
  Receive Date: 20160106
  Receipt Date: 20180419
  Transmission Date: 20180711
  Serious: Yes (Hospitalization, Other)
  Sender: FDA-Public Use
  Company Number: BR-AMGEN-BRASP2015112440

PATIENT
  Age: 36 Year
  Sex: Female
  Weight: 65 kg

DRUGS (18)
  1. ENBREL [Suspect]
     Active Substance: ETANERCEPT
     Dosage: 50 MG, ONCE WEEKLY
     Route: 058
     Dates: start: 2013
  2. PREDNISONE. [Concomitant]
     Active Substance: PREDNISONE
     Dosage: 20 MG, 1X/DAY
  3. RIVOTRIL [Concomitant]
     Active Substance: CLONAZEPAM
     Indication: INSOMNIA
     Dosage: 15 DROPS, DAILY
     Dates: start: 201204
  4. RIVOTRIL [Concomitant]
     Active Substance: CLONAZEPAM
     Dosage: 10 DROPS AT NIGHT
  5. TRAMAL [Concomitant]
     Active Substance: TRAMADOL
     Dosage: 20 DROGS EVERY 8 HOURS (3X/DAY)
  6. CENTRUM [Concomitant]
     Active Substance: VITAMINS
     Dosage: 1 TABLET, 2X/DAY
  7. VITAMIN B1 [Concomitant]
     Active Substance: THIAMINE HYDROCHLORIDE
     Dosage: UNK, 1X/DAY
  8. ENBREL [Suspect]
     Active Substance: ETANERCEPT
     Dosage: UNK
     Route: 065
  9. ADDERA D3 [Concomitant]
     Active Substance: CHOLECALCIFEROL
     Indication: OSTEOPOROSIS PROPHYLAXIS
     Dosage: UNK / 7000
     Dates: start: 2015
  10. ACARBOSE. [Concomitant]
     Active Substance: ACARBOSE
     Dosage: UNK, 1X/DAY (BEFORE LUNCH)
  11. AMYTRIL [Concomitant]
     Active Substance: AMITRIPTYLINE HYDROCHLORIDE
     Dosage: 50 MG, 1X/DAY,(AT NIGHT)
  12. TRAMAL [Concomitant]
     Active Substance: TRAMADOL
     Dosage: 50 MG, 3X/DAY
  13. OMEPRAZOLE. [Concomitant]
     Active Substance: OMEPRAZOLE
     Indication: METABOLIC SURGERY
     Dosage: 25 MG, 1X/DAY
     Dates: start: 2010
  14. OMEPRAZOLE. [Concomitant]
     Active Substance: OMEPRAZOLE
     Indication: METABOLIC SURGERY
     Dosage: 40 MG, ONCE A DAY
  15. AMYTRIL [Concomitant]
     Active Substance: AMITRIPTYLINE HYDROCHLORIDE
     Indication: INSOMNIA
     Dosage: 25 MG, 1X/DAY
     Dates: start: 201304
  16. ENBREL [Suspect]
     Active Substance: ETANERCEPT
     Indication: ANKYLOSING SPONDYLITIS
     Dosage: 50 MG, ONCE A WEEK
     Route: 058
     Dates: start: 201309, end: 201512
  17. ENBREL [Suspect]
     Active Substance: ETANERCEPT
     Dosage: UNK
     Route: 065
  18. VITAMIN C [Concomitant]
     Active Substance: ASCORBIC ACID
     Dosage: UNK, 2X/DAY FOR 15 DAYS

REACTIONS (25)
  - Hypoglycaemia [Not Recovered/Not Resolved]
  - Ankylosing spondylitis [Unknown]
  - Skin abrasion [Unknown]
  - Disease recurrence [Unknown]
  - Ulcerative keratitis [Unknown]
  - Anxiety [Unknown]
  - Arthralgia [Unknown]
  - Seizure [Unknown]
  - Headache [Unknown]
  - Vitamin D deficiency [Unknown]
  - Respiratory disorder [Unknown]
  - Spinal pain [Unknown]
  - Anaemia [Unknown]
  - Disease progression [Unknown]
  - Movement disorder [Unknown]
  - Vitamin B12 deficiency [Unknown]
  - Disease recurrence [Unknown]
  - Uveitis [Unknown]
  - Fibromyalgia [Unknown]
  - Syncope [Unknown]
  - Tremor [Not Recovered/Not Resolved]
  - Muscle spasms [Unknown]
  - Decreased immune responsiveness [Not Recovered/Not Resolved]
  - Pain [Unknown]
  - Hypovitaminosis [Unknown]

NARRATIVE: CASE EVENT DATE: 2014
